FAERS Safety Report 10185269 (Version 1)
Quarter: 2014Q2

REPORT INFORMATION
  Report Type: Spontaneous
  Country: US (occurrence: None)
  Receive Date: 20140520
  Receipt Date: 20140520
  Transmission Date: 20141212
  Serious: Yes (Disabling)
  Sender: FDA-Public Use
  Company Number: None

PATIENT
  Age: 79 Year
  Sex: Male
  Weight: 63.5 kg

DRUGS (1)
  1. ALEVE [Suspect]

REACTIONS (2)
  - Tinnitus [None]
  - Condition aggravated [None]
